FAERS Safety Report 19264659 (Version 6)
Quarter: 2021Q3

REPORT INFORMATION
  Report Type: Report from Study
  Country: DE (occurrence: DE)
  Receive Date: 20210517
  Receipt Date: 20210723
  Transmission Date: 20211014
  Serious: Yes (Hospitalization, Other)
  Sender: FDA-Public Use
  Company Number: DE-BRISTOL-MYERS SQUIBB COMPANY-BMS-2021-045443

PATIENT
  Age: 81 Year
  Sex: Female
  Weight: 53.3 kg

DRUGS (2)
  1. IPILIMUMAB [Suspect]
     Active Substance: IPILIMUMAB
     Indication: ADENOCARCINOMA GASTRIC
     Dosage: 51.70 MILLIGRAM, Q6WK
     Route: 042
     Dates: start: 20210218
  2. NIVOLUMAB [Suspect]
     Active Substance: NIVOLUMAB
     Indication: ADENOCARCINOMA GASTRIC
     Dosage: 155.10 MILLIGRAM, Q2WK
     Route: 042
     Dates: start: 20210218

REACTIONS (5)
  - Peripheral sensory neuropathy [Recovered/Resolved]
  - Hypothyroidism [Unknown]
  - Adrenalitis [Not Recovered/Not Resolved]
  - Fatigue [Recovered/Resolved]
  - Hyperthyroidism [Recovered/Resolved]

NARRATIVE: CASE EVENT DATE: 20210303
